FAERS Safety Report 5138224-0 (Version None)
Quarter: 2006Q4

REPORT INFORMATION
  Report Type: 
  Country: None (occurrence: None)
  Receive Date: 20061030
  Receipt Date: 20060727
  Transmission Date: 20070319
  Serious: No
  Sender: FDA-Public Use
  Company Number: US-GLAXOSMITHKLINE-A0613801A

PATIENT
  Age: 77 Year
  Sex: Female

DRUGS (18)
  1. ADVAIR HFA [Suspect]
     Indication: ASTHMA
     Dosage: 1PUFF TWICE PER DAY
     Route: 055
     Dates: start: 20060301
  2. DIFLUCAN [Suspect]
     Indication: COCCIDIOIDOMYCOSIS
     Dosage: 400MG IN THE MORNING
     Route: 048
     Dates: start: 20060301, end: 20060714
  3. PROZAC [Concomitant]
  4. ATENOLOL [Concomitant]
  5. COZAAR [Concomitant]
  6. LEVOTHYROXINE SODIUM [Concomitant]
  7. ASPIRIN [Concomitant]
  8. NIACIN [Concomitant]
  9. LASIX [Concomitant]
  10. POTASSIUM ACETATE [Concomitant]
  11. ALBUTEROL [Concomitant]
  12. TYLENOL [Concomitant]
  13. CALCIUM CITRATE [Concomitant]
  14. MULTI-VITAMIN [Concomitant]
  15. FISH OIL [Concomitant]
  16. BETA-CAROTENE [Concomitant]
  17. MAGNESIUM [Concomitant]
  18. DEMECLOCYCLINE [Concomitant]

REACTIONS (4)
  - ALOPECIA [None]
  - BRONCHITIS [None]
  - COUGH [None]
  - DYSPHONIA [None]
